FAERS Safety Report 9676548 (Version 1)
Quarter: 2013Q4

REPORT INFORMATION
  Report Type: Spontaneous
  Country: US (occurrence: US)
  Receive Date: 20131107
  Receipt Date: 20131107
  Transmission Date: 20140711
  Serious: Yes (Other)
  Sender: FDA-Public Use
  Company Number: US-RB-060232-13

PATIENT
  Sex: Female

DRUGS (3)
  1. SUBOXONE TABLET [Suspect]
     Indication: DRUG DEPENDENCE
     Dosage: UNKNOWN DOSING DETAILS
     Route: 060
     Dates: start: 2009, end: 2009
  2. SUBOXONE TABLET [Suspect]
     Route: 060
     Dates: start: 2009, end: 2009
  3. SUBUTEX [Suspect]
     Indication: DRUG DEPENDENCE
     Dosage: UNKNOWN DOSING DETAILS
     Route: 060
     Dates: start: 2009, end: 2009

REACTIONS (3)
  - Substance abuse [Recovered/Resolved]
  - Suicidal ideation [Recovered/Resolved]
  - Muscle spasms [Recovered/Resolved]
